FAERS Safety Report 18505662 (Version 4)
Quarter: 2021Q1

REPORT INFORMATION
  Report Type: Report from Study
  Country: ES (occurrence: ES)
  Receive Date: 20201116
  Receipt Date: 20210318
  Transmission Date: 20210419
  Serious: Yes (Death, Hospitalization)
  Sender: FDA-Public Use
  Company Number: NVSC2020ES267516

PATIENT
  Age: 74 Year
  Sex: Male
  Weight: 86 kg

DRUGS (4)
  1. AZACITIDINE. [Suspect]
     Active Substance: AZACITIDINE
     Indication: MYELODYSPLASTIC SYNDROME
  2. SABATOLIMAB. [Suspect]
     Active Substance: SABATOLIMAB
     Indication: ACUTE MYELOID LEUKAEMIA
     Dosage: 800 MG, Q4W
     Route: 042
     Dates: start: 20200916
  3. SABATOLIMAB. [Suspect]
     Active Substance: SABATOLIMAB
     Indication: MYELODYSPLASTIC SYNDROME
  4. AZACITIDINE. [Suspect]
     Active Substance: AZACITIDINE
     Indication: ACUTE MYELOID LEUKAEMIA
     Dosage: 75 MG/M2, OT
     Route: 058
     Dates: start: 20200909

REACTIONS (2)
  - Febrile neutropenia [Not Recovered/Not Resolved]
  - Respiratory tract infection [Fatal]

NARRATIVE: CASE EVENT DATE: 20200930
